FAERS Safety Report 17668105 (Version 1)
Quarter: 2020Q2

REPORT INFORMATION
  Report Type: Report from Study
  Country: US (occurrence: US)
  Receive Date: 20200414
  Receipt Date: 20200414
  Transmission Date: 20200713
  Serious: Yes (Hospitalization)
  Sender: FDA-Public Use
  Company Number: US-ELI_LILLY_AND_COMPANY-US202004001674

PATIENT
  Sex: Male

DRUGS (6)
  1. OLANZAPINE PAMOATE [Suspect]
     Active Substance: OLANZAPINE PAMOATE
     Dosage: 150 MG, 2/M
     Route: 030
     Dates: start: 20200312, end: 20200312
  2. OLANZAPINE PAMOATE [Suspect]
     Active Substance: OLANZAPINE PAMOATE
     Dosage: 150 MG, 2/M
     Route: 030
     Dates: start: 20200312, end: 20200312
  3. OLANZAPINE PAMOATE [Suspect]
     Active Substance: OLANZAPINE PAMOATE
     Indication: PRODUCT USED FOR UNKNOWN INDICATION
     Dosage: 150 MG, 2/M
     Route: 030
     Dates: start: 20190125
  4. OLANZAPINE PAMOATE [Suspect]
     Active Substance: OLANZAPINE PAMOATE
     Indication: PRODUCT USED FOR UNKNOWN INDICATION
     Dosage: 150 MG, 2/M
     Route: 030
     Dates: start: 20190125
  5. OLANZAPINE PAMOATE [Suspect]
     Active Substance: OLANZAPINE PAMOATE
     Dosage: 150 MG, 2/M
     Route: 030
     Dates: start: 20200312, end: 20200312
  6. OLANZAPINE PAMOATE [Suspect]
     Active Substance: OLANZAPINE PAMOATE
     Indication: PRODUCT USED FOR UNKNOWN INDICATION
     Dosage: 150 MG, 2/M
     Route: 030
     Dates: start: 20190125

REACTIONS (2)
  - Seizure [Not Recovered/Not Resolved]
  - Hypothermia [Not Recovered/Not Resolved]
